FAERS Safety Report 7358839 (Version 3)
Quarter: 2013Q3

REPORT INFORMATION
  Report Type: Report from Study
  Country: NL (occurrence: NL)
  Receive Date: 20100419
  Receipt Date: 20130731
  Transmission Date: 20140515
  Serious: Yes (Hospitalization)
  Sender: FDA-Public Use
  Company Number: NL-ROCHE-697506

PATIENT
  Age: 60 Year
  Sex: 0
  Weight: 92 kg

DRUGS (13)
  1. CAPECITABINE [Suspect]
     Indication: GASTRIC CANCER
     Dosage: DOSE AND FREQUENCY AS PER PROTOCOL. LAST DOSE PRIOR TO SAE ON 17 MAY 2010.
     Route: 048
  2. EPIRUBICIN [Suspect]
     Indication: GASTRIC CANCER
     Dosage: DOSE AND FREQUENCY AS PER PROTOCOL. LAST DOSE PRIOR TO SAE ON 17 MAY 2010.
     Route: 042
     Dates: start: 20091202
  3. CISPLATIN [Suspect]
     Indication: GASTRIC CANCER
     Dosage: DOSE AND FREQUENCY AS PER PROTOCOL. LAST DOSE PRIOR TO SAE ON 17 MAY 2010.
     Route: 042
     Dates: start: 20091202
  4. AMLODIPINE [Concomitant]
     Route: 065
  5. LOPERAMIDE [Concomitant]
     Route: 065
  6. LORAZEPAM [Concomitant]
     Route: 065
  7. METOCLOPRAMIDE [Concomitant]
     Route: 065
  8. PARACETAMOL [Concomitant]
     Route: 065
  9. SIMVASTATIN [Concomitant]
     Route: 065
  10. SPIRONOLACTON [Concomitant]
     Route: 065
  11. TEMAZEPAM [Concomitant]
     Route: 065
  12. TRAMADOL [Concomitant]
     Route: 065
  13. INSULIN [Concomitant]
     Dosage: REPORTED AS INSULINE
     Route: 065

REACTIONS (3)
  - Gastric fistula [Recovered/Resolved]
  - Subdiaphragmatic abscess [Recovered/Resolved]
  - Enterocutaneous fistula [Recovered/Resolved]
